FAERS Safety Report 16873398 (Version 4)
Quarter: 2020Q1

REPORT INFORMATION
  Report Type: Spontaneous
  Country: US (occurrence: US)
  Receive Date: 20191001
  Receipt Date: 20200121
  Transmission Date: 20200409
  Serious: No
  Sender: FDA-Public Use
  Company Number: US-PFIZER INC-2018205085

PATIENT
  Age: 89 Year
  Sex: Female
  Weight: 68.4 kg

DRUGS (4)
  1. LYRICA [Suspect]
     Active Substance: PREGABALIN
     Indication: DIABETIC NEUROPATHY
     Dosage: 300 MG, 1 CAPSULE 2 TIMES A DAY[300MG IN THE MORNING AND 300 MG AT NIGHT BY MOUTH]
     Route: 048
  2. LYRICA [Suspect]
     Active Substance: PREGABALIN
     Indication: POLYNEUROPATHY
     Dosage: 300 MG, 1 CAPSULE 2 TIMES A DAY[300MG IN THE MORNING AND 300 MG AT NIGHT BY MOUTH]
     Route: 048
     Dates: start: 20190930
  3. LYRICA [Suspect]
     Active Substance: PREGABALIN
     Indication: NEUROPATHY PERIPHERAL
  4. LYRICA [Suspect]
     Active Substance: PREGABALIN
     Indication: TYPE 2 DIABETES MELLITUS

REACTIONS (5)
  - Expired product administered [Unknown]
  - Malaise [Unknown]
  - Visual impairment [Unknown]
  - Body height decreased [Unknown]
  - Withdrawal syndrome [Unknown]

NARRATIVE: CASE EVENT DATE: 20190926
